FAERS Safety Report 4996094-5 (Version None)
Quarter: 2006Q2

REPORT INFORMATION
  Report Type: 
  Country: None (occurrence: None)
  Receive Date: 20060504
  Receipt Date: 20060419
  Transmission Date: 20061013
  Serious: Yes (Hospitalization, Other)
  Sender: FDA-Public Use
  Company Number: 219023

PATIENT
  Age: 57 Year
  Sex: Female
  Weight: 50.8 kg

DRUGS (5)
  1. HERCEPTIN [Suspect]
     Indication: BREAST CANCER
     Dosage: 1/WEEK, IV DRIP
     Route: 041
     Dates: start: 20050901, end: 20050927
  2. PACLITAXEL [Concomitant]
  3. CLARITHROMYCIN [Concomitant]
  4. PULMICORT [Concomitant]
  5. AZULFIDINE EN-TABS [Concomitant]

REACTIONS (12)
  - BLOOD ALKALINE PHOSPHATASE INCREASED [None]
  - CONDITION AGGRAVATED [None]
  - GAMMA-GLUTAMYLTRANSFERASE DECREASED [None]
  - IMMUNOSUPPRESSION [None]
  - INTERSTITIAL LUNG DISEASE [None]
  - LUNG DISORDER [None]
  - MUSCULOSKELETAL PAIN [None]
  - PNEUMONIA [None]
  - PULMONARY MYCOSIS [None]
  - RHEUMATOID LUNG [None]
  - THERAPY NON-RESPONDER [None]
  - WHITE BLOOD CELL COUNT DECREASED [None]
